FAERS Safety Report 5608137-6 (Version None)
Quarter: 2008Q1

REPORT INFORMATION
  Report Type: 
  Country: None (occurrence: None)
  Receive Date: 20080125
  Receipt Date: 20080108
  Transmission Date: 20080703
  Serious: Yes (Other)
  Sender: FDA-Public Use
  Company Number: 2008JP000103

PATIENT
  Age: 88 Year
  Sex: Male

DRUGS (1)
  1. VESICARE [Suspect]
     Indication: HYPERTONIC BLADDER
     Dosage: 5 MG/D, ORAL
     Route: 048
     Dates: start: 20080102, end: 20080107

REACTIONS (1)
  - CEREBRAL INFARCTION [None]
